FAERS Safety Report 25346164 (Version 5)
Quarter: 2025Q3

REPORT INFORMATION
  Report Type: Report from Study
  Country: KR (occurrence: KR)
  Receive Date: 20250522
  Receipt Date: 20250828
  Transmission Date: 20251020
  Serious: Yes (Other)
  Sender: ABBVIE
  Company Number: KR-ABBVIE-6290442

PATIENT
  Age: 45 Year
  Sex: Male
  Weight: 90 kg

DRUGS (8)
  1. SKYRIZI [Suspect]
     Active Substance: RISANKIZUMAB-RZAA
     Indication: Psoriasis
     Route: 058
     Dates: start: 20231113, end: 20231113
  2. SKYRIZI [Suspect]
     Active Substance: RISANKIZUMAB-RZAA
     Route: 058
     Dates: start: 20231211, end: 20231211
  3. SKYRIZI [Suspect]
     Active Substance: RISANKIZUMAB-RZAA
     Route: 058
     Dates: start: 20240318, end: 20240318
  4. SKYRIZI [Suspect]
     Active Substance: RISANKIZUMAB-RZAA
     Route: 058
     Dates: start: 20240613, end: 20240613
  5. SKYRIZI [Suspect]
     Active Substance: RISANKIZUMAB-RZAA
     Route: 058
     Dates: start: 20240905, end: 20240905
  6. SKYRIZI [Suspect]
     Active Substance: RISANKIZUMAB-RZAA
     Route: 058
     Dates: start: 20241202, end: 20241202
  7. Cipol n [Concomitant]
     Indication: Psoriasis
     Dosage: FORM STRENGTH WAS 100MG
     Route: 048
     Dates: start: 20231113
  8. Cipol n [Concomitant]
     Indication: Psoriasis
     Dosage: FORM STRENGTH WAS 25 MG
     Route: 048
     Dates: start: 20231113

REACTIONS (2)
  - Hepatic cirrhosis [Recovering/Resolving]
  - Pruritus [Recovered/Resolved]

NARRATIVE: CASE EVENT DATE: 20240417
